FAERS Safety Report 4754214-1 (Version None)
Quarter: 2005Q3

REPORT INFORMATION
  Report Type: 
  Country: None (occurrence: None)
  Receive Date: 20050825
  Receipt Date: 20050825
  Transmission Date: 20060218
  Serious: Yes (Hospitalization, Other)
  Sender: FDA-Public Use
  Company Number: None

PATIENT
  Sex: Female
  Weight: 83 kg

DRUGS (7)
  1. TEMOZOLOMIDE [Suspect]
     Indication: GLIOBLASTOMA MULTIFORME
     Dosage: SEE IMAGE
     Dates: start: 20050522, end: 20050705
  2. TEMOZOLOMIDE [Suspect]
     Indication: GLIOBLASTOMA MULTIFORME
     Dosage: SEE IMAGE
     Dates: start: 20050808
  3. IRINOTECAN [Suspect]
     Dosage: SEE IMAGE
     Dates: start: 20050808, end: 20050808
  4. RADIATION [Suspect]
     Dosage: SEE IMAGE
     Dates: start: 20050808
  5. HYDROCODONE 5/500 [Concomitant]
  6. LAMICTAL [Concomitant]
  7. XANAX [Concomitant]

REACTIONS (1)
  - GRAND MAL CONVULSION [None]
